FAERS Safety Report 9223207 (Version 1)
Quarter: 2013Q2

REPORT INFORMATION
  Report Type: Spontaneous
  Country: ES (occurrence: ES)
  Receive Date: 20130410
  Receipt Date: 20130410
  Transmission Date: 20140414
  Serious: Yes (Death, Other)
  Sender: FDA-Public Use
  Company Number: ES-GILEAD-2013-0067294

PATIENT
  Age: 33 Year
  Sex: Female

DRUGS (9)
  1. VISTIDE [Suspect]
     Indication: CYTOMEGALOVIRUS INFECTION
     Dosage: 5 MG/KG, Q1WK
  2. FLUDARABINE [Concomitant]
     Indication: PROPHYLAXIS AGAINST GRAFT VERSUS HOST DISEASE
     Dosage: 150 MG/M2, UNK
  3. THIOTEPA [Concomitant]
     Indication: PROPHYLAXIS AGAINST GRAFT VERSUS HOST DISEASE
     Dosage: 10 MG/KG, UNK
  4. BUSULFAN [Concomitant]
     Indication: PROPHYLAXIS AGAINST GRAFT VERSUS HOST DISEASE
     Dosage: 3.2 MG/KG, UNK
  5. ANTITHYMOCYTE IMMUNOGLOBULIN (RABBIT) [Concomitant]
     Indication: PROPHYLAXIS AGAINST GRAFT VERSUS HOST DISEASE
     Dosage: 6 MG/KG, UNK
  6. CYCLOSPORINE [Concomitant]
     Indication: PROPHYLAXIS AGAINST GRAFT VERSUS HOST DISEASE
  7. MYCOPHENOLATE MOFETIL [Concomitant]
     Indication: PROPHYLAXIS AGAINST GRAFT VERSUS HOST DISEASE
  8. PREDNISONE [Concomitant]
     Indication: ACUTE GRAFT VERSUS HOST DISEASE
  9. VALGANCICLOVIR [Concomitant]
     Indication: CYTOMEGALOVIRUS INFECTION
     Dosage: 900 MG, BID

REACTIONS (1)
  - Drug ineffective for unapproved indication [Fatal]
